FAERS Safety Report 12249535 (Version 1)
Quarter: 2016Q2

REPORT INFORMATION
  Report Type: Spontaneous
  Country: CA (occurrence: CA)
  Receive Date: 20160408
  Receipt Date: 20160408
  Transmission Date: 20160815
  Serious: Yes (Other)
  Sender: FDA-Public Use
  Company Number: CA-BAYER-2016-063146

PATIENT
  Age: 31 Year
  Sex: Female
  Weight: 43.84 kg

DRUGS (1)
  1. GADOVIST [Suspect]
     Active Substance: GADOBUTROL
     Indication: ENDOMETRIOSIS
     Dosage: 5 ML, ONCE
     Route: 042

REACTIONS (3)
  - Dry throat [None]
  - Injection related reaction [Recovered/Resolved]
  - Cough [None]
